FAERS Safety Report 16991214 (Version 3)
Quarter: 2020Q3

REPORT INFORMATION
  Report Type: Spontaneous
  Country: US (occurrence: US)
  Receive Date: 20191104
  Receipt Date: 20200714
  Transmission Date: 20201102
  Serious: Yes (Other)
  Sender: FDA-Public Use
  Company Number: US-JNJFOC-20191033695

PATIENT
  Age: 45 Year
  Sex: Male
  Weight: 99.88 kg

DRUGS (4)
  1. SULFAMETHOXAZOLE AND TRIMETHOPRIM [Suspect]
     Active Substance: SULFAMETHOXAZOLE\TRIMETHOPRIM
     Indication: NOCTURIA
     Route: 048
  2. SULFAMETHOXAZOLE AND TRIMETHOPRIM [Suspect]
     Active Substance: SULFAMETHOXAZOLE\TRIMETHOPRIM
     Indication: URINARY HESITATION
  3. LEVAQUIN [Suspect]
     Active Substance: LEVOFLOXACIN
     Indication: URINARY HESITATION
  4. LEVAQUIN [Suspect]
     Active Substance: LEVOFLOXACIN
     Indication: NOCTURIA
     Route: 048

REACTIONS (1)
  - Sebaceous adenitis [Recovered/Resolved]

NARRATIVE: CASE EVENT DATE: 2018
